FAERS Safety Report 7944672-3 (Version None)
Quarter: 2011Q4

REPORT INFORMATION
  Report Type: 
  Country: None (occurrence: None)
  Receive Date: 20111129
  Receipt Date: 20111122
  Transmission Date: 20120403
  Serious: Yes (Other)
  Sender: FDA-Public Use
  Company Number: US-AMGEN-USASP2011062169

PATIENT
  Sex: Female

DRUGS (1)
  1. NPLATE [Suspect]
     Indication: THROMBOCYTOPENIA
     Dates: start: 20100521, end: 20101104

REACTIONS (3)
  - VITH NERVE PARALYSIS [None]
  - VISUAL IMPAIRMENT [None]
  - PLATELET COUNT DECREASED [None]
